FAERS Safety Report 9057775 (Version 1)
Quarter: 2013Q1

REPORT INFORMATION
  Report Type: Spontaneous
  Country: DE (occurrence: DE)
  Receive Date: 20130204
  Receipt Date: 20130204
  Transmission Date: 20140127
  Serious: Yes (Other)
  Sender: FDA-Public Use
  Company Number: DE-ASTRAZENECA-2013SE06195

PATIENT
  Sex: Male

DRUGS (2)
  1. BRILIQUE [Suspect]
     Route: 048
  2. ASS 100 [Suspect]
     Route: 048

REACTIONS (1)
  - Deep vein thrombosis [Unknown]
